FAERS Safety Report 10347646 (Version 2)
Quarter: 2014Q3

REPORT INFORMATION
  Report Type: Spontaneous
  Country: AU (occurrence: AU)
  Receive Date: 20140729
  Receipt Date: 20140902
  Transmission Date: 20150326
  Serious: Yes (Death, Hospitalization, Other)
  Sender: FDA-Public Use
  Company Number: AU-ACTELION-A-CH2014-102716

PATIENT
  Age: 82 Year
  Sex: Female
  Weight: 42.86 kg

DRUGS (8)
  1. DIGOXIN. [Concomitant]
     Active Substance: DIGOXIN
     Dosage: 62.5 UNK, UNK
     Dates: start: 200601
  2. NEXIUM [Concomitant]
     Active Substance: ESOMEPRAZOLE MAGNESIUM
     Dosage: 40 MG, BID
     Dates: start: 200610
  3. NIZATIDINE. [Concomitant]
     Active Substance: NIZATIDINE
     Dosage: 150 MG, QD
     Dates: start: 200610
  4. NORSPAN [Concomitant]
     Active Substance: BUPRENORPHINE
     Dosage: 20 MCG, Q1WEEK
     Dates: start: 201108
  5. THYROXINE [Concomitant]
     Active Substance: LEVOTHYROXINE
     Dosage: 100 MCG, QD
     Dates: start: 200610
  6. FRUSEMIDE [Concomitant]
     Active Substance: FUROSEMIDE
     Dosage: 20 MG, QD
     Dates: start: 200908
  7. TRACLEER [Suspect]
     Active Substance: BOSENTAN\BOSENTAN MONOHYDRATE
     Indication: PULMONARY ARTERIAL HYPERTENSION
     Dosage: 125 MG, BID
     Route: 048
     Dates: start: 20070625, end: 20140620
  8. PANADOL [Concomitant]
     Active Substance: ACETAMINOPHEN
     Dosage: 1330 MG, BID
     Dates: start: 201011

REACTIONS (28)
  - Multi-organ failure [Not Recovered/Not Resolved]
  - Rhabdomyolysis [Not Recovered/Not Resolved]
  - Aspartate aminotransferase increased [Not Recovered/Not Resolved]
  - Ischaemic hepatitis [Not Recovered/Not Resolved]
  - Sepsis [Not Recovered/Not Resolved]
  - Confusional state [Fatal]
  - Coma scale abnormal [Fatal]
  - Ecchymosis [Unknown]
  - Alanine aminotransferase increased [Not Recovered/Not Resolved]
  - Gamma-glutamyltransferase increased [Not Recovered/Not Resolved]
  - Fluid retention [Unknown]
  - Cerebrovascular accident [Fatal]
  - Circulatory collapse [Fatal]
  - Dehydration [Unknown]
  - Hypothermia [Not Recovered/Not Resolved]
  - Joint swelling [Unknown]
  - Fluid overload [Not Recovered/Not Resolved]
  - Terminal state [Not Recovered/Not Resolved]
  - Renal failure acute [Not Recovered/Not Resolved]
  - Oedema [Not Recovered/Not Resolved]
  - Coma [Fatal]
  - Gangrene [Not Recovered/Not Resolved]
  - Pulmonary oedema [Not Recovered/Not Resolved]
  - Loss of consciousness [Fatal]
  - Blood alkaline phosphatase increased [Not Recovered/Not Resolved]
  - Blood creatine phosphokinase increased [Not Recovered/Not Resolved]
  - Laceration [Unknown]
  - Hypoglycaemia [Not Recovered/Not Resolved]

NARRATIVE: CASE EVENT DATE: 2009
